FAERS Safety Report 10666845 (Version 2)
Quarter: 2014Q4

REPORT INFORMATION
  Report Type: Spontaneous
  Country: US (occurrence: US)
  Receive Date: 20141222
  Receipt Date: 20141222
  Transmission Date: 20150529
  Serious: No
  Sender: FDA-Public Use
  Company Number: US-DRREDDYS-USA/USA/14/0043439

PATIENT
  Age: 50 Year
  Sex: Male

DRUGS (1)
  1. ZIPRASIDONE CAPSULES 20 MG, 40 MG, 60 MG + 80 MG [Suspect]
     Active Substance: ZIPRASIDONE
     Indication: BRAIN INJURY
     Route: 048

REACTIONS (3)
  - Thinking abnormal [Not Recovered/Not Resolved]
  - Drug ineffective [Unknown]
  - Product quality issue [Unknown]

NARRATIVE: CASE EVENT DATE: 20140924
